FAERS Safety Report 6904514-1 (Version None)
Quarter: 2010Q3

REPORT INFORMATION
  Report Type: 
  Country: None (occurrence: None)
  Receive Date: 20100804
  Receipt Date: 20090601
  Transmission Date: 20110219
  Serious: No
  Sender: FDA-Public Use
  Company Number: US-PFIZER INC-2009221594

PATIENT
  Sex: Male
  Weight: 78.005 kg

DRUGS (10)
  1. LYRICA [Suspect]
     Indication: NEUROPATHY PERIPHERAL
     Dosage: 100 MG, 2X/DAY
     Dates: start: 20090520, end: 20090501
  2. ALLOPURINOL [Concomitant]
     Dosage: UNK
  3. BENICAR [Concomitant]
     Dosage: UNK
  4. NIFEDIPINE [Concomitant]
     Dosage: UNK
  5. METOPROLOL [Concomitant]
     Dosage: UNK
  6. VITAMIN B COMPLEX CAP [Concomitant]
     Dosage: UNK
  7. MULTI-VITAMINS [Concomitant]
     Dosage: UNK
  8. VITAMIN E [Concomitant]
     Dosage: UNK
  9. ASCORBIC ACID [Concomitant]
     Dosage: UNK
  10. ZETIA [Concomitant]
     Dosage: UNK

REACTIONS (1)
  - FEELING ABNORMAL [None]
